FAERS Safety Report 10564376 (Version 2)
Quarter: 2014Q4

REPORT INFORMATION
  Report Type: Report from Study
  Country: US (occurrence: US)
  Receive Date: 20141104
  Receipt Date: 20141104
  Transmission Date: 20150529
  Serious: Yes (Death, Life-Threatening, Hospitalization, Other)
  Sender: FDA-Public Use
  Company Number: US-TAKEDA-2014MPI002865

PATIENT
  Age: 76 Year
  Sex: Male
  Weight: 94.33 kg

DRUGS (15)
  1. SINEMET [Concomitant]
     Active Substance: CARBIDOPA\LEVODOPA
     Dosage: 25/100, 2 EVERY 8 AM AND EVERY 4 PM, 1 EVERY NOON AND 10 PM
     Route: 048
  2. SKELAXIN [Concomitant]
     Active Substance: METAXALONE
     Dosage: 800 MG, BID
     Route: 048
  3. SIMVASTATIN. [Concomitant]
     Active Substance: SIMVASTATIN
     Dosage: 40 MG, DAILY
     Route: 048
  4. VITAMIN D                          /00107901/ [Concomitant]
     Active Substance: ERGOCALCIFEROL
     Dosage: 2000 UNITS, QD
     Route: 048
  5. VELCADE [Suspect]
     Active Substance: BORTEZOMIB
     Indication: PLASMA CELL MYELOMA
     Dosage: 2.73 MG, ON DAY 1, 8 AND 15 OF 28 DAYS CYCLE
     Route: 058
     Dates: start: 20141020, end: 20141020
  6. COUMADIN [Concomitant]
     Active Substance: WARFARIN SODIUM
     Indication: ATRIAL FIBRILLATION
     Dosage: 2 MG, DAILY
     Route: 048
  7. CYCLOPHOSPHAMIDE. [Suspect]
     Active Substance: CYCLOPHOSPHAMIDE
     Indication: PLASMA CELL MYELOMA
     Dosage: 600 MG, ON DAY 1,8 AND 15 OF 28 DAYS CYCLE
     Route: 048
     Dates: start: 20141020, end: 20141020
  8. DEXAMETHASONE. [Suspect]
     Active Substance: DEXAMETHASONE
     Indication: PLASMA CELL MYELOMA
     Dosage: 2.73 MG, ON DAY 1, 8 AND 15 OF 28 DAYS CYCLE
     Route: 058
     Dates: start: 20141020, end: 20141020
  9. LEVAQUIN [Concomitant]
     Active Substance: LEVOFLOXACIN
     Dosage: 500 MG, QOD
  10. DURAGESIC [Concomitant]
     Active Substance: FENTANYL
     Dosage: 25 ?G, Q3DAYS
  11. PROTONIX [Concomitant]
     Active Substance: PANTOPRAZOLE SODIUM
     Dosage: 40 MG, DAILY
  12. FENTANYL. [Concomitant]
     Active Substance: FENTANYL
     Dosage: 25 ?G, EVERY 3 DAYS
  13. OMEPRAZOLE. [Concomitant]
     Active Substance: OMEPRAZOLE
     Dosage: 20 MG, QD EVERY MORNING
     Route: 048
  14. DILTIAZEM [Concomitant]
     Active Substance: DILTIAZEM
     Dosage: 180 MG, DAILY
     Route: 048
  15. TRIAMCINOLONE [Concomitant]
     Active Substance: TRIAMCINOLONE
     Route: 061

REACTIONS (5)
  - Sepsis [Fatal]
  - Dehydration [Fatal]
  - Cardiac arrest [Fatal]
  - Metabolic encephalopathy [Fatal]
  - Pneumonia [Fatal]

NARRATIVE: CASE EVENT DATE: 20141027
